FAERS Safety Report 6382660-1 (Version None)
Quarter: 2009Q3

REPORT INFORMATION
  Report Type: 
  Country: None (occurrence: None)
  Receive Date: 20090930
  Receipt Date: 20090923
  Transmission Date: 20100115
  Serious: Yes (Hospitalization, Other)
  Sender: FDA-Public Use
  Company Number: GB-JNJFOC-20090907042

PATIENT
  Age: 49 Year
  Sex: Female

DRUGS (8)
  1. HALOPERIDOL [Suspect]
     Indication: AGITATION
     Route: 048
     Dates: start: 20090703, end: 20090706
  2. HALOPERIDOL [Suspect]
     Indication: AGITATION
     Route: 030
     Dates: start: 20090703, end: 20090706
  3. SEROQUEL [Suspect]
     Indication: MOOD SWINGS
     Route: 048
     Dates: end: 20090706
  4. ASPIRIN [Concomitant]
     Indication: HAEMODILUTION
     Route: 048
     Dates: start: 20090204
  5. CLONAZEPAM [Concomitant]
     Indication: AGITATION
     Route: 048
     Dates: start: 20090706
  6. DEPAKOTE [Concomitant]
     Indication: BIPOLAR DISORDER
     Route: 048
     Dates: start: 20090703, end: 20090724
  7. LAMOTRIGINE [Concomitant]
     Indication: EPILEPSY
     Route: 048
     Dates: start: 20090610
  8. CITALOPRAM HYDROBROMIDE [Concomitant]
     Indication: STUPOR
     Route: 065

REACTIONS (2)
  - CEREBROVASCULAR ACCIDENT [None]
  - NEUROLEPTIC MALIGNANT SYNDROME [None]
